FAERS Safety Report 4595171-0 (Version None)
Quarter: 2005Q1

REPORT INFORMATION
  Report Type: 
  Country: None (occurrence: None)
  Receive Date: 20050225
  Receipt Date: 20050215
  Transmission Date: 20050727
  Serious: Yes (Other)
  Sender: FDA-Public Use
  Company Number: US-YAMANOUCHI-YPA20050053

PATIENT
  Age: 72 Year
  Sex: Female
  Weight: 47.6277 kg

DRUGS (9)
  1. VESICARE [Suspect]
     Indication: HYPERTONIC BLADDER
     Dosage: 5 MG DAILY PO
     Route: 048
  2. METFORMIN [Concomitant]
  3. ATENOLOL [Concomitant]
  4. COZAAR [Concomitant]
  5. ASPIRIN [Concomitant]
  6. FOSAMAX [Concomitant]
  7. NYSTATIN [Concomitant]
  8. OXYBUTYNIN [Concomitant]
  9. FISH OIL [Concomitant]

REACTIONS (1)
  - BLOOD GLUCOSE INCREASED [None]
